FAERS Safety Report 4993712-2 (Version None)
Quarter: 2006Q2

REPORT INFORMATION
  Report Type: 
  Country: None (occurrence: None)
  Receive Date: 20060505
  Receipt Date: 20050706
  Transmission Date: 20061013
  Serious: Yes (Hospitalization)
  Sender: FDA-Public Use
  Company Number: US-MERCK-0507USA00800

PATIENT
  Age: 58 Year
  Sex: Female
  Weight: 116 kg

DRUGS (5)
  1. VIOXX [Suspect]
     Indication: OSTEOARTHRITIS
     Route: 048
     Dates: start: 20020101, end: 20030101
  2. BEXTRA [Suspect]
     Route: 065
  3. CELEBREX [Suspect]
     Route: 065
  4. [THERAPY UNSPECIFIED] [Concomitant]
     Indication: HYPERTENSION
     Route: 065
  5. ANTIMICROBIAL (UNSPECIFIED) [Concomitant]
     Route: 065

REACTIONS (12)
  - ABDOMINAL PAIN UPPER [None]
  - ADVERSE EVENT [None]
  - ARRHYTHMIA [None]
  - CARDIAC DISORDER [None]
  - DIABETES MELLITUS [None]
  - GASTRIC HAEMORRHAGE [None]
  - GASTRIC PERFORATION [None]
  - HEART RATE ABNORMAL [None]
  - INJURY [None]
  - OVERDOSE [None]
  - PALPITATIONS [None]
  - PNEUMONIA [None]
